FAERS Safety Report 9687952 (Version 1)
Quarter: 2013Q4

REPORT INFORMATION
  Report Type: Spontaneous
  Country: SZ (occurrence: None)
  Receive Date: 20131112
  Receipt Date: 20131112
  Transmission Date: 20140711
  Serious: Yes (Other)
  Sender: FDA-Public Use
  Company Number: 20130622

PATIENT
  Age: 43 Year
  Sex: Male
  Weight: 81.64 kg

DRUGS (3)
  1. FERINJECT [Suspect]
     Indication: IRON DEFICIENCY ANAEMIA
     Route: 051
     Dates: start: 20130729, end: 20130729
  2. SULPHASALAZINE [Concomitant]
  3. FERINJECT (FERRIC CARBOXYMALTOSE-VIFOR) [Suspect]
     Indication: IRON DEFICIENCY ANAEMIA

REACTIONS (12)
  - Fatigue [None]
  - Nausea [None]
  - Muscle fatigue [None]
  - Constipation [None]
  - Dyspnoea [None]
  - Burnout syndrome [None]
  - Malaise [None]
  - Hypocalcaemia [None]
  - Hypophosphataemia [None]
  - Hepatic enzyme abnormal [None]
  - Self-medication [None]
  - Cognitive disorder [None]
